FAERS Safety Report 7315711-8 (Version None)
Quarter: 2011Q1

REPORT INFORMATION
  Report Type: 
  Country: None (occurrence: None)
  Receive Date: 20110217
  Receipt Date: 20110217
  Transmission Date: 20110831
  Serious: Yes (Other)
  Sender: FDA-Public Use
  Company Number: None

PATIENT
  Age: 81 Year
  Sex: Female
  Weight: 92.5338 kg

DRUGS (3)
  1. CORDRAN [Suspect]
     Indication: SKIN DISORDER
     Dates: start: 20110203
  2. CORDRAN [Suspect]
     Indication: SKIN DISORDER
     Dates: start: 20110202
  3. CORDRAN [Suspect]
     Indication: SKIN DISORDER
     Dates: start: 20110204

REACTIONS (1)
  - INFECTED SKIN ULCER [None]
